FAERS Safety Report 20918881 (Version 1)
Quarter: 2022Q2

REPORT INFORMATION
  Report Type: Spontaneous
  Country: US (occurrence: None)
  Receive Date: 20220605
  Receipt Date: 20220605
  Transmission Date: 20220721
  Serious: Yes (Disabling)
  Sender: FDA-Public Use
  Company Number: None

PATIENT
  Age: 43 Year
  Sex: Male
  Weight: 90 kg

DRUGS (5)
  1. PAXLOVID [Suspect]
     Active Substance: NIRMATRELVIR\RITONAVIR
     Indication: COVID-19
     Dosage: FREQUENCY : TWICE A DAY;?
     Route: 048
     Dates: start: 20220602, end: 20220603
  2. Nexium [Concomitant]
  3. VALSARTAN [Concomitant]
     Active Substance: VALSARTAN
  4. LEXAPRO [Concomitant]
     Active Substance: ESCITALOPRAM OXALATE
  5. SUNOSI [Concomitant]

REACTIONS (4)
  - Restless legs syndrome [None]
  - Hot flush [None]
  - Palpitations [None]
  - Insomnia [None]

NARRATIVE: CASE EVENT DATE: 20220603
